FAERS Safety Report 23694421 (Version 4)
Quarter: 2024Q2

REPORT INFORMATION
  Report Type: Spontaneous
  Country: DE (occurrence: DE)
  Receive Date: 20240401
  Receipt Date: 20240627
  Transmission Date: 20240715
  Serious: Yes (Other)
  Sender: FDA-Public Use
  Company Number: DE-BRISTOL-MYERS SQUIBB COMPANY-2024-041757

PATIENT
  Age: 71 Year
  Sex: Male
  Weight: 107 kg

DRUGS (39)
  1. CARBOPLATIN [Suspect]
     Active Substance: CARBOPLATIN
     Indication: Non-small cell lung cancer
     Dosage: 580 AUC - MG/MIN*ML
     Route: 042
     Dates: start: 20240227
  2. CARBOPLATIN [Suspect]
     Active Substance: CARBOPLATIN
     Dosage: 580 AUC - MG/MIN*ML
     Route: 042
     Dates: start: 20240116
  3. CARBOPLATIN [Suspect]
     Active Substance: CARBOPLATIN
     Dosage: 580 AUC - MG/MIN*ML
     Route: 042
     Dates: start: 20240206
  4. DEXAMETHASONE [Suspect]
     Active Substance: DEXAMETHASONE
     Indication: Product used for unknown indication
     Dosage: 16.000MG QD
     Route: 042
     Dates: start: 20240227, end: 20240227
  5. DEXAMETHASONE [Suspect]
     Active Substance: DEXAMETHASONE
     Dosage: 16.000MG QD
     Route: 042
     Dates: start: 20240206, end: 20240206
  6. DEXAMETHASONE [Suspect]
     Active Substance: DEXAMETHASONE
     Dosage: 16.000MG
     Route: 042
     Dates: start: 20240116, end: 20240116
  7. DEXAMETHASONE [Suspect]
     Active Substance: DEXAMETHASONE
     Dosage: 32MG
     Route: 042
     Dates: start: 20240116, end: 20240116
  8. DEXAMETHASONE [Suspect]
     Active Substance: DEXAMETHASONE
     Dosage: 8.000MG QD
     Route: 042
     Dates: start: 20240117, end: 20240118
  9. DEXAMETHASONE [Suspect]
     Active Substance: DEXAMETHASONE
     Dosage: 8.000MG QD
     Route: 048
     Dates: start: 20240207, end: 20240208
  10. DEXAMETHASONE [Suspect]
     Active Substance: DEXAMETHASONE
     Dosage: 8.000MG QD
     Route: 048
     Dates: start: 20240228, end: 20240229
  11. NIVOLUMAB [Suspect]
     Active Substance: NIVOLUMAB
     Indication: Non-small cell lung cancer
     Dosage: CYCLE FOR 3 CYCLE
     Route: 042
     Dates: start: 20240116
  12. PACLITAXEL [Suspect]
     Active Substance: PACLITAXEL
     Indication: Non-small cell lung cancer
     Dosage: 400.000MG/M2
     Route: 042
     Dates: start: 20240206
  13. PACLITAXEL [Suspect]
     Active Substance: PACLITAXEL
     Dosage: 400.000MG/M2
     Route: 042
     Dates: start: 20240116
  14. PACLITAXEL [Suspect]
     Active Substance: PACLITAXEL
     Dosage: 400.000MG/M2
     Route: 042
     Dates: start: 20240227
  15. ALLOPURINOL [Concomitant]
     Active Substance: ALLOPURINOL
     Indication: Prophylaxis
     Dosage: 300.000MG
     Route: 048
     Dates: start: 20231001
  16. CANDESARTAN [Concomitant]
     Active Substance: CANDESARTAN
     Indication: Hypertension
     Dosage: 16.000MG QD
     Route: 048
     Dates: start: 20090101
  17. CHOLECALCIFEROL [Concomitant]
     Active Substance: CHOLECALCIFEROL
     Indication: Prophylaxis
     Route: 065
  18. CHOLECALCIFEROL [Concomitant]
     Active Substance: CHOLECALCIFEROL
     Indication: Prophylaxis
     Route: 065
  19. CYANOCOBALAMIN;FOLIC ACID;PYRIDOXINE [Concomitant]
     Indication: Prophylaxis
     Route: 065
  20. DEXAMETHASONE [Concomitant]
     Active Substance: DEXAMETHASONE
     Dosage: 16.000MG QD
     Route: 042
     Dates: start: 20240227, end: 20240227
  21. DEXAMETHASONE [Concomitant]
     Active Substance: DEXAMETHASONE
     Indication: Prophylaxis
     Dosage: 8.000MG QD
     Route: 048
     Dates: start: 20240228, end: 20240229
  22. DIMETHINDENE [Concomitant]
     Active Substance: DIMETHINDENE
     Indication: Prophylaxis
     Dosage: 1 AMP
     Route: 042
     Dates: start: 20240227, end: 20240227
  23. DIMETHINDENE [Concomitant]
     Active Substance: DIMETHINDENE
     Dosage: DOSE: 1 AMP
     Route: 042
     Dates: start: 20240116, end: 20240116
  24. DIMETHINDENE [Concomitant]
     Active Substance: DIMETHINDENE
     Dosage: DOSE: 1 AMP
     Route: 042
     Dates: start: 20240206, end: 20240206
  25. METAMIZOLE [Concomitant]
     Active Substance: METAMIZOLE
     Indication: Non-small cell lung cancer
     Route: 065
  26. METAMIZOLE [Concomitant]
     Active Substance: METAMIZOLE
     Indication: Non-small cell lung cancer
     Route: 065
  27. METOCLOPRAMIDE HYDROCHLORIDE [Concomitant]
     Active Substance: METOCLOPRAMIDE HYDROCHLORIDE
     Indication: Prophylaxis
     Dosage: 10.000MG
     Route: 048
     Dates: start: 20240206, end: 20240214
  28. METOCLOPRAMIDE HYDROCHLORIDE [Concomitant]
     Active Substance: METOCLOPRAMIDE HYDROCHLORIDE
     Dosage: 10.000MG
     Route: 048
     Dates: start: 20240227
  29. NALOXONE HYDROCHLORIDE\TILIDINE HYDROCHLORIDE [Concomitant]
     Active Substance: NALOXONE HYDROCHLORIDE\TILIDINE HYDROCHLORIDE
     Indication: Prophylaxis
     Route: 065
  30. NALOXONE HYDROCHLORIDE\TILIDINE HYDROCHLORIDE [Concomitant]
     Active Substance: NALOXONE HYDROCHLORIDE\TILIDINE HYDROCHLORIDE
     Indication: Prophylaxis
     Route: 065
  31. NETUPITANT\PALONOSETRON [Concomitant]
     Active Substance: NETUPITANT\PALONOSETRON
     Indication: Prophylaxis
     Dosage: 300.000MG QD
     Route: 048
     Dates: start: 20240227, end: 20240227
  32. NETUPITANT\PALONOSETRON [Concomitant]
     Active Substance: NETUPITANT\PALONOSETRON
     Dosage: 300.000MG QD
     Route: 048
     Dates: start: 20240116, end: 20240116
  33. NETUPITANT\PALONOSETRON [Concomitant]
     Active Substance: NETUPITANT\PALONOSETRON
     Dosage: 300.000MG QD
     Route: 048
     Dates: start: 20240206, end: 20240206
  34. ONDANSETRON [Concomitant]
     Active Substance: ONDANSETRON
     Indication: Prophylaxis
     Dosage: 8 MG AS NEEDED
     Route: 048
     Dates: start: 20240206, end: 20240228
  35. ONDANSETRON [Concomitant]
     Active Substance: ONDANSETRON
     Dosage: AS NEEDED
     Route: 034
     Dates: start: 20240206, end: 20240228
  36. OXYCODONE [Concomitant]
     Active Substance: OXYCODONE\OXYCODONE HYDROCHLORIDE
     Indication: Prophylaxis
     Route: 065
  37. OXYCODONE [Concomitant]
     Active Substance: OXYCODONE\OXYCODONE HYDROCHLORIDE
     Indication: Prophylaxis
     Route: 065
  38. PALONOSETRON [Concomitant]
     Active Substance: PALONOSETRON
     Indication: Prophylaxis
     Dosage: 300.000MG QD
     Route: 048
     Dates: start: 20240227, end: 20240227
  39. PANTOPRAZOLE [Concomitant]
     Active Substance: PANTOPRAZOLE
     Indication: Prophylaxis
     Dosage: 20.000MG
     Route: 048
     Dates: start: 20240101

REACTIONS (6)
  - Autoimmune myositis [Recovered/Resolved]
  - Autoimmune myositis [Not Recovered/Not Resolved]
  - Insomnia [Recovered/Resolved]
  - Autoimmune dermatitis [Recovered/Resolved]
  - Fungal skin infection [Recovered/Resolved]
  - Nausea [Recovered/Resolved]

NARRATIVE: CASE EVENT DATE: 20240312
